FAERS Safety Report 15181731 (Version 1)
Quarter: 2018Q3

REPORT INFORMATION
  Report Type: Spontaneous
  Country: US (occurrence: US)
  Receive Date: 20180624
  Receipt Date: 20180624
  Transmission Date: 20181010
  Serious: Yes (Other)
  Sender: FDA-Public Use
  Company Number: None

PATIENT
  Age: 19 Year
  Sex: Female
  Weight: 51.75 kg

DRUGS (5)
  1. IRON [Concomitant]
     Active Substance: IRON
  2. MELFLOQUINE [Suspect]
     Active Substance: MEFLOQUINE
     Indication: MALARIA
     Dosage: ?          OTHER FREQUENCY:ONCE A WEEK;?
     Route: 048
     Dates: start: 20180609, end: 201806
  3. MULTIVITAMIN [Concomitant]
     Active Substance: VITAMINS
  4. LEVOTHYROXINE. [Concomitant]
     Active Substance: LEVOTHYROXINE
  5. VITAMIN D [Concomitant]
     Active Substance: CHOLECALCIFEROL

REACTIONS (10)
  - Tremor [None]
  - Decreased appetite [None]
  - Abdominal discomfort [None]
  - Headache [None]
  - Anxiety [None]
  - Dehydration [None]
  - Aggression [None]
  - Panic attack [None]
  - Dyspnoea [None]
  - Hypoaesthesia [None]

NARRATIVE: CASE EVENT DATE: 20180617
